FAERS Safety Report 5781054-7 (Version None)
Quarter: 2008Q2

REPORT INFORMATION
  Report Type: 
  Country: None (occurrence: None)
  Receive Date: 20080620
  Receipt Date: 20080610
  Transmission Date: 20081010
  Serious: Yes (Other)
  Sender: FDA-Public Use
  Company Number: BR-PFIZER INC-2008049342

PATIENT
  Sex: Male

DRUGS (1)
  1. MARAX (TABS) [Suspect]
     Indication: BRONCHITIS
     Route: 048

REACTIONS (1)
  - DRUG DEPENDENCE [None]
